FAERS Safety Report 10254782 (Version 2)
Quarter: 2014Q2

REPORT INFORMATION
  Report Type: Spontaneous
  Country: CN (occurrence: CN)
  Receive Date: 20140624
  Receipt Date: 20140624
  Transmission Date: 20141212
  Serious: Yes (Other)
  Sender: FDA-Public Use
  Company Number: CN-SA-2014SA061659

PATIENT
  Age: 41 Year
  Sex: Male
  Weight: 61.5 kg

DRUGS (1)
  1. LANTUS [Suspect]
     Indication: DIABETES MELLITUS
     Route: 058
     Dates: start: 20140403

REACTIONS (4)
  - Myalgia [Recovering/Resolving]
  - Pain in extremity [Recovering/Resolving]
  - Exercise tolerance decreased [Not Recovered/Not Resolved]
  - Sleep disorder [Not Recovered/Not Resolved]
